FAERS Safety Report 4607812-X (Version None)
Quarter: 2005Q1

REPORT INFORMATION
  Report Type: 
  Country: None (occurrence: None)
  Receive Date: 20050314
  Receipt Date: 20050207
  Transmission Date: 20050727
  Serious: Yes (Other)
  Sender: FDA-Public Use
  Company Number: PHBS2005JP02111

PATIENT
  Age: 83 Year
  Sex: Female
  Weight: 38 kg

DRUGS (9)
  1. DIOVAN [Suspect]
     Dosage: 40 MG, QD
     Route: 048
     Dates: start: 20050108, end: 20050125
  2. ZYLORIC [Concomitant]
     Indication: HYPERURICAEMIA
     Dosage: 100 MG, QD
     Route: 048
     Dates: end: 20050124
  3. ZANTAC [Concomitant]
     Indication: GASTRITIS
     Dosage: 150 MG, UNK
     Route: 048
     Dates: start: 20041222, end: 20050124
  4. ADALAT [Concomitant]
     Indication: HYPERTENSION
     Dosage: 20 MG, UNK
     Route: 048
  5. ITOROL [Concomitant]
     Indication: MYOCARDIAL ISCHAEMIA
     Dosage: 40 MG, UNK
     Route: 048
  6. CYANOCOBALAMIN [Concomitant]
     Indication: NEUROPATHY PERIPHERAL
     Dosage: 1 MG, UNK
     Route: 048
  7. KALIMATE [Concomitant]
     Indication: HYPERKALAEMIA
     Dosage: 10 G, UNK
     Route: 048
  8. SODIUM BICARBONATE [Concomitant]
     Indication: RENAL FAILURE CHRONIC
     Dosage: 1.5 G, UNK
     Route: 048
     Dates: start: 20041228, end: 20050131
  9. SENNOSIDE [Concomitant]
     Indication: CONSTIPATION
     Dosage: 12 MG, UNK
     Route: 048
     Dates: start: 20041229

REACTIONS (7)
  - EXANTHEM [None]
  - ORAL DISCOMFORT [None]
  - PETECHIAE [None]
  - PRURITUS GENERALISED [None]
  - PYREXIA [None]
  - TOXIC SKIN ERUPTION [None]
  - URTICARIA [None]
